FAERS Safety Report 5896001-7 (Version None)
Quarter: 2008Q3

REPORT INFORMATION
  Report Type: 
  Country: None (occurrence: None)
  Receive Date: 20080924
  Receipt Date: 20080915
  Transmission Date: 20090109
  Serious: No
  Sender: FDA-Public Use
  Company Number: GB-PFIZER INC-2008073390

PATIENT
  Age: 57 Year
  Sex: Female

DRUGS (2)
  1. FLUCONAZOLE [Suspect]
     Indication: PNEUMONIA CRYPTOCOCCAL
  2. AMITRIPTYLINE HCL [Concomitant]

REACTIONS (1)
  - NO ADVERSE EVENT [None]
